FAERS Safety Report 5573844-0 (Version None)
Quarter: 2007Q4

REPORT INFORMATION
  Report Type: 
  Country: None (occurrence: None)
  Receive Date: 20071226
  Receipt Date: 20071214
  Transmission Date: 20080405
  Serious: Yes (Hospitalization, Other)
  Sender: FDA-Public Use
  Company Number: US-PFIZER INC-2007105562

PATIENT
  Age: 45 Year
  Sex: Male

DRUGS (4)
  1. GEODON [Suspect]
     Indication: SCHIZOAFFECTIVE DISORDER
     Dosage: DAILY DOSE:200MG
  2. GEODON [Suspect]
     Indication: BIPOLAR DISORDER
  3. RISPERDAL [Concomitant]
     Dosage: DAILY DOSE:4MG
  4. KLONOPIN [Concomitant]
     Dosage: DAILY DOSE:4MG

REACTIONS (5)
  - CONDITION AGGRAVATED [None]
  - DELUSION [None]
  - URINARY HESITATION [None]
  - URINARY RETENTION [None]
  - URINARY TRACT INFECTION [None]
